FAERS Safety Report 24276184 (Version 2)
Quarter: 2024Q3

REPORT INFORMATION
  Report Type: Report from Study
  Country: US (occurrence: US)
  Receive Date: 20240903
  Receipt Date: 20240925
  Transmission Date: 20241017
  Serious: Yes (Other)
  Sender: IPSEN
  Company Number: US-IPSEN Group, Research and Development-2024-07333

PATIENT
  Age: 62 Year
  Sex: Male

DRUGS (2)
  1. SOMATULINE DEPOT [Suspect]
     Active Substance: LANREOTIDE ACETATE
     Indication: Carcinoid tumour of the small bowel
     Route: 058
     Dates: end: 20240328
  2. SOMATULINE DEPOT [Suspect]
     Active Substance: LANREOTIDE ACETATE
     Route: 058
     Dates: start: 20240516

REACTIONS (5)
  - Nephrolithiasis [Unknown]
  - Weight decreased [Unknown]
  - Injection site pain [Unknown]
  - Asthenia [Unknown]
  - Off label use [Unknown]

NARRATIVE: CASE EVENT DATE: 20230701
